FAERS Safety Report 9980705 (Version 1)
Quarter: 2014Q1

REPORT INFORMATION
  Report Type: Spontaneous
  Country: DE (occurrence: DE)
  Receive Date: 20140307
  Receipt Date: 20140307
  Transmission Date: 20141002
  Serious: Yes (Other)
  Sender: FDA-Public Use
  Company Number: DE-RANBAXY-2014R1-78639

PATIENT
  Age: 49 Year
  Sex: Female
  Weight: 80 kg

DRUGS (2)
  1. FLUOXETINE [Suspect]
     Indication: FIBROMYALGIA
     Dosage: 40 MG, QD
     Route: 048
     Dates: start: 201304
  2. FINGOLIMOD [Suspect]
     Indication: MULTIPLE SCLEROSIS
     Dosage: 0.5 MG, QD
     Route: 048
     Dates: start: 2010

REACTIONS (1)
  - Foot fracture [Recovered/Resolved]
